FAERS Safety Report 14883018 (Version 1)
Quarter: 2020Q3

REPORT INFORMATION
  Report Type: Report from Study
  Country: ES (occurrence: ES)
  Receive Date: 20180511
  Receipt Date: 20180511
  Transmission Date: 20201105
  Serious: Yes (Hospitalization)
  Sender: FDA-Public Use
  Company Number: ES-ASTRAZENECA-2018SE51085

PATIENT
  Age: 26406 Day
  Sex: Male
  Weight: 68 kg

DRUGS (3)
  1. MEDI4736 [Suspect]
     Active Substance: DURVALUMAB
     Indication: NEUROENDOCRINE TUMOUR OF THE LUNG
     Route: 042
     Dates: start: 20180411
  2. MEDI4736 [Suspect]
     Active Substance: DURVALUMAB
     Indication: NEUROENDOCRINE TUMOUR OF THE LUNG
     Route: 042
     Dates: start: 20170508
  3. TREMELIMUMAB. [Suspect]
     Active Substance: TREMELIMUMAB
     Indication: NEUROENDOCRINE TUMOUR OF THE LUNG
     Route: 042
     Dates: start: 20170508

REACTIONS (1)
  - Vomiting [Recovered/Resolved]

NARRATIVE: CASE EVENT DATE: 20180413
